FAERS Safety Report 6213338-2 (Version None)
Quarter: 2009Q2

REPORT INFORMATION
  Report Type: 
  Country: None (occurrence: None)
  Receive Date: 20090601
  Receipt Date: 20090601
  Transmission Date: 20091009
  Serious: Yes (Life-Threatening)
  Sender: FDA-Public Use
  Company Number: None

PATIENT
  Age: 42 Year
  Sex: Female
  Weight: 104.1 kg

DRUGS (3)
  1. MORPHINE SULFATE [Suspect]
     Indication: PAIN
     Dosage: MORPHINE 2MG Q48 PRN IV
     Route: 042
     Dates: start: 20090525
  2. MORPHINE SULFATE [Suspect]
     Indication: PNEUMONIA
     Dosage: MORPHINE 2MG Q48 PRN IV
     Route: 042
     Dates: start: 20090525
  3. BACLOFEN [Suspect]
     Indication: MUSCLE SPASMS
     Dosage: BACLOFEN 20MG TID PO
     Route: 048
     Dates: start: 20090525

REACTIONS (2)
  - RESPIRATORY RATE DECREASED [None]
  - SKIN DISCOLOURATION [None]
